FAERS Safety Report 4703142-6 (Version None)
Quarter: 2005Q2

REPORT INFORMATION
  Report Type: 
  Country: None (occurrence: None)
  Receive Date: 20050629
  Receipt Date: 20050622
  Transmission Date: 20051028
  Serious: Yes (Life-Threatening, Hospitalization, Other)
  Sender: FDA-Public Use
  Company Number: LB-GLAXOSMITHKLINE-B0386098A

PATIENT
  Age: 77 Year
  Sex: Female

DRUGS (2)
  1. ARIXTRA [Suspect]
     Indication: PROPHYLAXIS
     Dates: start: 20050618, end: 20050619
  2. INNOHEP [Concomitant]

REACTIONS (4)
  - HYPOXIA [None]
  - PULMONARY EMBOLISM [None]
  - SIMPLE PARTIAL SEIZURES [None]
  - TACHYPNOEA [None]
